FAERS Safety Report 7082158-1 (Version None)
Quarter: 2010Q4

REPORT INFORMATION
  Report Type: 
  Country: None (occurrence: None)
  Receive Date: 20101103
  Receipt Date: 20101026
  Transmission Date: 20110411
  Serious: Yes (Life-Threatening, Hospitalization, Disabling)
  Sender: FDA-Public Use
  Company Number: FR-GILEAD-2009-0019752

PATIENT
  Sex: Female
  Weight: 42 kg

DRUGS (18)
  1. TRUVADA [Suspect]
     Indication: HIV INFECTION
     Route: 048
     Dates: start: 20081114
  2. SUSTIVA [Suspect]
     Indication: HIV INFECTION
     Route: 048
     Dates: start: 20081114
  3. SUSTIVA [Suspect]
     Dates: start: 20100107
  4. FUZEON [Suspect]
     Indication: HIV INFECTION
     Dates: start: 20081114, end: 20090430
  5. RIFATER [Suspect]
     Indication: TUBERCULOSIS
     Dates: start: 20081114
  6. MYAMBUTOL [Suspect]
     Indication: TUBERCULOSIS
     Dates: start: 20081114
  7. SPECIAFOLDINE [Concomitant]
     Indication: ANAEMIA
     Dates: start: 20081106
  8. BACTRIM [Concomitant]
     Indication: PROPHYLAXIS
     Route: 048
     Dates: start: 20081114
  9. PIRILENE [Concomitant]
     Route: 048
     Dates: start: 20090203, end: 20090325
  10. MYAMBUTOL [Concomitant]
     Route: 048
     Dates: start: 20090203, end: 20090325
  11. RIMIFON [Concomitant]
     Route: 048
     Dates: start: 20090203, end: 20090325
  12. RIFAMPICIN [Concomitant]
     Route: 042
     Dates: start: 20090203, end: 20090325
  13. RIFADIN [Concomitant]
     Route: 048
  14. SCOPODERM [Concomitant]
     Indication: NEUROPATHY PERIPHERAL
  15. AMITRIPTYLINE HCL [Concomitant]
     Route: 048
  16. DURAGESIC-100 [Concomitant]
  17. FORTIMEL [Concomitant]
     Route: 048
  18. SOLU-MEDROL [Concomitant]
     Indication: IMMUNE RECONSTITUTION SYNDROME
     Dates: start: 20081201

REACTIONS (2)
  - IMMUNE RECONSTITUTION SYNDROME [None]
  - IMPAIRED GASTRIC EMPTYING [None]
